FAERS Safety Report 7271591-0 (Version None)
Quarter: 2011Q1

REPORT INFORMATION
  Report Type: 
  Country: None (occurrence: None)
  Receive Date: 20110121
  Receipt Date: 20110121
  Transmission Date: 20110831
  Serious: No
  Sender: FDA-Public Use
  Company Number: None

PATIENT
  Age: 58 Year
  Sex: Female
  Weight: 87.0906 kg

DRUGS (1)
  1. SAVELLA [Suspect]
     Indication: FIBROMYALGIA
     Dosage: 1 TABLET/50 MG TWICE A DAY PO
     Route: 048
     Dates: start: 20101223, end: 20110124

REACTIONS (21)
  - CONFUSIONAL STATE [None]
  - APHASIA [None]
  - PRURITUS [None]
  - PARAESTHESIA [None]
  - ARTHRALGIA [None]
  - NIGHT SWEATS [None]
  - ASTHENIA [None]
  - DISCOMFORT [None]
  - HEADACHE [None]
  - VISION BLURRED [None]
  - FEELING HOT [None]
  - PAIN [None]
  - INSOMNIA [None]
  - FATIGUE [None]
  - HYPERHIDROSIS [None]
  - FEELING COLD [None]
  - ABNORMAL DREAMS [None]
  - ACTIVITIES OF DAILY LIVING IMPAIRED [None]
  - FEELING ABNORMAL [None]
  - MEMORY IMPAIRMENT [None]
  - DISTURBANCE IN ATTENTION [None]
